FAERS Safety Report 18537835 (Version 1)
Quarter: 2020Q4

REPORT INFORMATION
  Report Type: Spontaneous
  Country: JP (occurrence: JP)
  Receive Date: 20201124
  Receipt Date: 20201124
  Transmission Date: 20210114
  Serious: Yes (Other)
  Sender: FDA-Public Use
  Company Number: JP-LUPIN PHARMACEUTICALS INC.-2020-09248

PATIENT
  Age: 83 Year

DRUGS (8)
  1. TOCILIZUMAB. [Suspect]
     Active Substance: TOCILIZUMAB
     Indication: CYTOKINE RELEASE SYNDROME
  2. NAFAMOSTAT [Concomitant]
     Active Substance: NAFAMOSTAT
     Indication: CYTOKINE RELEASE SYNDROME
  3. FAVIPIRAVIR [Concomitant]
     Active Substance: FAVIPIRAVIR
     Indication: COVID-19
     Dosage: UNK
     Route: 065
     Dates: start: 2020, end: 2020
  4. AZITHROMYCIN ANHYDROUS. [Suspect]
     Active Substance: AZITHROMYCIN ANHYDROUS
     Indication: CYTOKINE RELEASE SYNDROME
  5. FAVIPIRAVIR [Concomitant]
     Active Substance: FAVIPIRAVIR
     Indication: CYTOKINE RELEASE SYNDROME
  6. AZITHROMYCIN ANHYDROUS. [Suspect]
     Active Substance: AZITHROMYCIN ANHYDROUS
     Indication: COVID-19
     Dosage: UNK
     Route: 065
     Dates: start: 2020, end: 2020
  7. TOCILIZUMAB. [Suspect]
     Active Substance: TOCILIZUMAB
     Indication: COVID-19
     Dosage: 8 MILLIGRAM/KILOGRAM (RECEIVED TWO DOSES)
     Route: 042
     Dates: start: 2020, end: 2020
  8. NAFAMOSTAT [Concomitant]
     Active Substance: NAFAMOSTAT
     Indication: COVID-19
     Dosage: UNK
     Route: 065
     Dates: start: 2020, end: 2020

REACTIONS (1)
  - Off label use [Unknown]

NARRATIVE: CASE EVENT DATE: 2020
